FAERS Safety Report 4348455-5 (Version None)
Quarter: 2004Q2

REPORT INFORMATION
  Report Type: 
  Country: None (occurrence: None)
  Receive Date: 20040422
  Receipt Date: 20040402
  Transmission Date: 20050107
  Serious: Yes (Hospitalization)
  Sender: FDA-Public Use
  Company Number: EWC040438790

PATIENT
  Age: 79 Year
  Sex: Female

DRUGS (3)
  1. ZYPREXA [Suspect]
     Indication: PSYCHOTIC DISORDER DUE TO A GENERAL MEDICAL CONDITION
     Dosage: 5 MG DAY
     Dates: start: 20031212, end: 20040319
  2. ZYPREXA [Suspect]
     Indication: SENILE DEMENTIA
     Dosage: 5 MG DAY
     Dates: start: 20031212, end: 20040319
  3. VALPROIC ACID [Concomitant]

REACTIONS (4)
  - FALL [None]
  - HEAD INJURY [None]
  - LOSS OF CONSCIOUSNESS [None]
  - TRANSIENT ISCHAEMIC ATTACK [None]
